FAERS Safety Report 19572459 (Version 1)
Quarter: 2021Q3

REPORT INFORMATION
  Report Type: Spontaneous
  Country: FR (occurrence: FR)
  Receive Date: 20210716
  Receipt Date: 20210716
  Transmission Date: 20211014
  Serious: Yes (Other)
  Sender: FDA-Public Use
  Company Number: FR-ALSI-2021000213

PATIENT
  Age: 24 Year
  Sex: Female

DRUGS (2)
  1. NITROUS OXIDE. [Suspect]
     Active Substance: NITROUS OXIDE
     Indication: DRUG ABUSE
     Route: 055
  2. ALCOHOL. [Concomitant]
     Active Substance: ALCOHOL
     Route: 048

REACTIONS (4)
  - Headache [Recovered/Resolved]
  - Paraesthesia [Recovered/Resolved]
  - Paralysis [Recovered/Resolved]
  - Drug abuse [Recovered/Resolved]
